FAERS Safety Report 9117547 (Version 1)
Quarter: 2013Q1

REPORT INFORMATION
  Report Type: Spontaneous
  Country: CA (occurrence: CA)
  Receive Date: 20130225
  Receipt Date: 20130225
  Transmission Date: 20140127
  Serious: Yes (Death, Congenital Anomaly, Other)
  Sender: FDA-Public Use
  Company Number: CA-TEVA-388342USA

PATIENT
  Sex: 0

DRUGS (1)
  1. PLAN B [Suspect]
     Route: 065

REACTIONS (2)
  - Anencephaly [Unknown]
  - Death [Fatal]
